FAERS Safety Report 5496933-8 (Version None)
Quarter: 2007Q4

REPORT INFORMATION
  Report Type: 
  Country: None (occurrence: None)
  Receive Date: 20071023
  Receipt Date: 20071009
  Transmission Date: 20080405
  Serious: Yes (Hospitalization)
  Sender: FDA-Public Use
  Company Number: 100#08#2007-03985

PATIENT
  Age: 56 Year
  Sex: Male

DRUGS (5)
  1. FLUCONAZOLE [Suspect]
     Indication: PNEUMONIA
  2. CICLOSPORIN MICROEMULSION (CICLOSPORIN) [Suspect]
     Indication: IMMUNOSUPPRESSANT DRUG THERAPY
     Dosage: 250 MG; 200 MG; 150 MG; 75 MG
  3. EVEROLIMUS (EVEROLIMUS) (EVEROLIMUS) [Suspect]
     Indication: ANGIOPATHY
     Dosage: 1.5 MG (TWICE DAILY)
  4. CIPROFLOXACIN [Concomitant]
  5. NIMESULIDE (NIMESULIDE) (NIMESULIDE) [Concomitant]

REACTIONS (9)
  - ACUTE MYOCARDIAL INFARCTION [None]
  - BACK PAIN [None]
  - CORONARY ARTERY DISEASE [None]
  - DRUG INTERACTION [None]
  - IMMUNOSUPPRESSANT DRUG LEVEL INCREASED [None]
  - LEUKOPENIA [None]
  - PNEUMONIA [None]
  - RENAL FAILURE ACUTE [None]
  - SELF-MEDICATION [None]
